FAERS Safety Report 9602208 (Version 1)
Quarter: 2013Q4

REPORT INFORMATION
  Report Type: Spontaneous
  Country: US (occurrence: US)
  Receive Date: 20131007
  Receipt Date: 20131007
  Transmission Date: 20140711
  Serious: Yes (Death)
  Sender: FDA-Public Use
  Company Number: US-ASTELLAS-2013US010416

PATIENT
  Age: 52 Year
  Sex: Male

DRUGS (1)
  1. PROGRAF [Suspect]
     Dosage: 7 MG, UID/QD
     Route: 048
     Dates: start: 19970412, end: 20130928

REACTIONS (2)
  - Off label use [Unknown]
  - Death [Fatal]
